FAERS Safety Report 13638553 (Version 1)
Quarter: 2017Q2

REPORT INFORMATION
  Report Type: Spontaneous
  Country: CL (occurrence: CL)
  Receive Date: 20170609
  Receipt Date: 20170609
  Transmission Date: 20170830
  Serious: Yes (Other)
  Sender: FDA-Public Use
  Company Number: CL-PFIZER INC-2017251635

PATIENT
  Age: 19 Year
  Sex: Female

DRUGS (1)
  1. ALTRULINE [Suspect]
     Active Substance: SERTRALINE HYDROCHLORIDE
     Indication: PSYCHOTHERAPY
     Dosage: UNK
     Dates: start: 201702

REACTIONS (1)
  - Foetal death [Unknown]

NARRATIVE: CASE EVENT DATE: 201705
